FAERS Safety Report 6056275-9 (Version None)
Quarter: 2009Q1

REPORT INFORMATION
  Report Type: 
  Country: None (occurrence: None)
  Receive Date: 20090129
  Receipt Date: 20090121
  Transmission Date: 20090719
  Serious: Yes (Hospitalization)
  Sender: FDA-Public Use
  Company Number: FR-WYE-G02981909

PATIENT
  Sex: Male

DRUGS (3)
  1. EFFEXOR [Suspect]
     Route: 048
     Dates: end: 20081207
  2. ALCOHOL [Suspect]
     Dosage: UNKNOWN
     Route: 048
     Dates: start: 19930101, end: 20081130
  3. PRAZEPAM [Concomitant]
     Dosage: UNKNOWN
     Route: 048

REACTIONS (4)
  - ALCOHOL WITHDRAWAL SYNDROME [None]
  - CEREBRAL HAEMATOMA [None]
  - GRAND MAL CONVULSION [None]
  - HEADACHE [None]
